FAERS Safety Report 7483783-6 (Version None)
Quarter: 2011Q2

REPORT INFORMATION
  Report Type: 
  Country: None (occurrence: None)
  Receive Date: 20110517
  Receipt Date: 20110513
  Transmission Date: 20111010
  Serious: Yes (Death, Other)
  Sender: FDA-Public Use
  Company Number: PHFR2011GB02819

PATIENT
  Sex: Male

DRUGS (4)
  1. LANSOPRAZOLE [Concomitant]
     Indication: GASTRITIS PROPHYLAXIS
     Dosage: 400 DF, TID
     Route: 048
  2. LORAZEPAM [Concomitant]
     Indication: DEMENTIA
     Dosage: 500 UG, BID
     Route: 048
  3. IBUPROFEN [Concomitant]
     Dosage: 15 DF, QD
     Route: 048
  4. CLOZARIL [Suspect]
     Indication: SCHIZOPHRENIA
     Route: 048
     Dates: start: 20100216

REACTIONS (4)
  - DEATH [None]
  - MALAISE [None]
  - TRANSIENT ISCHAEMIC ATTACK [None]
  - CEREBROVASCULAR ACCIDENT [None]
